FAERS Safety Report 20833904 (Version 2)
Quarter: 2022Q2

REPORT INFORMATION
  Report Type: Spontaneous
  Country: US (occurrence: US)
  Receive Date: 20220516
  Receipt Date: 20220602
  Transmission Date: 20220721
  Serious: No
  Sender: FDA-Public Use
  Company Number: US-ORGANON-O2205USA000440

PATIENT
  Sex: Female
  Weight: 60.771 kg

DRUGS (20)
  1. DULERA [Suspect]
     Active Substance: FORMOTEROL FUMARATE DIHYDRATE\MOMETASONE FUROATE
     Indication: Asthma
     Dosage: 2 INHALATIONS/TWICE DAILY, 200/5 MCG, 120 DOSES
     Dates: start: 20220423, end: 20220502
  2. DULERA [Concomitant]
     Active Substance: FORMOTEROL FUMARATE DIHYDRATE\MOMETASONE FUROATE
     Indication: Asthma
     Dosage: UNK
     Dates: start: 2017
  3. ALBUTEROL [Concomitant]
     Active Substance: ALBUTEROL
     Indication: Wheezing
     Dosage: INHALE 2 INHALATIONS INTO LUNGS EVERY 6 HOURS AS NEEDED (STRENGTH: 90 MCG/ACTUATION INHALER)
  4. COLLAGEN PLUS C [Concomitant]
     Dosage: UNK
     Route: 048
  5. LIORESAL [Concomitant]
     Active Substance: BACLOFEN
     Dosage: TAKE 2 TABLETS (20 MG TOTALLY) BY MOUTH 3 (THREE) TIMES DAILY
     Route: 048
  6. WELLBUTRIN SR [Concomitant]
     Active Substance: BUPROPION HYDROCHLORIDE
     Dosage: TAKE 1 TABLET (150 MG TOTAL) BY MOUTH ONCE DAILY
     Route: 048
  7. OSCAL D [Concomitant]
     Active Substance: CALCIUM CARBONATE\CHOLECALCIFEROL
     Dosage: TAKE 1 TABLET BY MOUTH 2 (TWO) TIMES DAILY WITH MEALS (STRENGTH: 500MG-5MCG (200 UNIT))
     Route: 048
  8. ZYRTEC [Concomitant]
     Active Substance: CETIRIZINE HYDROCHLORIDE
     Dosage: TAKE 10 MG BY MOUTH ONCE DAILY
     Route: 048
  9. COENZYME Q10 [Concomitant]
     Active Substance: DIETARY SUPPLEMENT\UBIDECARENONE
     Dosage: TAKE 10 MG BY MOUTH ONCE DAILY
     Route: 048
  10. OMEGA 3-6-9 [BORAGO OFFICINALIS OIL;FISH OIL;LINUM USITATISSIMUM OIL] [Concomitant]
     Dosage: TAKE BY MOUTH (1200 MG)
     Route: 048
  11. ACETIL L CARNITINE [Concomitant]
     Dosage: USE
  12. MAGNESIUM [Concomitant]
     Active Substance: MAGNESIUM
     Dosage: TAKE BY MOUTH
     Route: 048
  13. VITAMINS [Concomitant]
     Active Substance: VITAMINS
     Dosage: TAKE 1 TABLET BY MOUTH ONCE DAILY
  14. ALEVE [Concomitant]
     Active Substance: NAPROXEN SODIUM
     Dosage: TAKE 220 MG BY MOUTH 2 TIMES DAILY WITH MEALS
     Route: 048
  15. ADEMETIONINE [Concomitant]
     Active Substance: ADEMETIONINE
     Dosage: TAKE BY MOUTH
     Route: 048
  16. SELENIUM [Concomitant]
     Active Substance: SELENIUM
     Dosage: TAKE BY MOUTH
     Route: 048
  17. B COMPLEX WITH FOLIC ACID [Concomitant]
     Dosage: TAKE BY MOUTH
     Route: 048
  18. DIETARY SUPPLEMENT [Concomitant]
     Active Substance: DIETARY SUPPLEMENT
     Dosage: TAKE BY MOUTH
     Route: 048
  19. HERBALS\SAW PALMETTO [Concomitant]
     Active Substance: HERBALS\SAW PALMETTO
     Dosage: TAKE BY MOUTH
     Route: 048
  20. SYNTHROID [Concomitant]
     Active Substance: LEVOTHYROXINE SODIUM
     Dosage: TAKE 1 TABLET 100 MCG BY MOUTH EVERY MORNING BEFORE BREAKFAST (0630) 30 TO 60 MINUTES BEFORE BREAKFA
     Route: 048

REACTIONS (5)
  - Pulmonary pain [Recovering/Resolving]
  - Cough [Unknown]
  - Device malfunction [Unknown]
  - Poor quality device used [Unknown]
  - Wrong technique in device usage process [Unknown]

NARRATIVE: CASE EVENT DATE: 20220101
